FAERS Safety Report 13921303 (Version 2)
Quarter: 2017Q4

REPORT INFORMATION
  Report Type: Spontaneous
  Country: JP (occurrence: JP)
  Receive Date: 20170830
  Receipt Date: 20171121
  Transmission Date: 20180320
  Serious: No
  Sender: FDA-Public Use
  Company Number: JP-PFIZER INC-2017365082

PATIENT
  Age: 34 Year
  Sex: Female

DRUGS (2)
  1. LUTORAL [Suspect]
     Active Substance: CHLORMADINONE ACETATE
     Indication: INFERTILITY
     Dosage: 4 MG  (TWO 2 MG TABLETS), 1X/DAY
     Route: 048
  2. PREMARIN [Suspect]
     Active Substance: ESTROGENS, CONJUGATED
     Indication: INFERTILITY
     Dosage: 1.25 MG, 1X/DAY (TWO 0.625 TABLETS)
     Route: 048

REACTIONS (2)
  - Product use in unapproved indication [Unknown]
  - Palpitations [Recovered/Resolved]

NARRATIVE: CASE EVENT DATE: 201707
